FAERS Safety Report 25747761 (Version 2)
Quarter: 2025Q3

REPORT INFORMATION
  Report Type: Report from Study
  Country: US (occurrence: US)
  Receive Date: 20250901
  Receipt Date: 20250929
  Transmission Date: 20251020
  Serious: Yes (Other)
  Sender: UCB
  Company Number: US-UCBSA-2025014796

PATIENT
  Sex: Male
  Weight: 52.3 kg

DRUGS (5)
  1. FINTEPLA [Suspect]
     Active Substance: FENFLURAMINE
     Indication: Lennox-Gastaut syndrome
     Dosage: 5.8 MILLILITER, 2X/DAY (BID)
     Route: 048
     Dates: start: 20241225
  2. FINTEPLA [Suspect]
     Active Substance: FENFLURAMINE
     Dosage: 2.7 MILLILITER, 2X/DAY (BID)
     Dates: start: 20241227
  3. FINTEPLA [Suspect]
     Active Substance: FENFLURAMINE
     Dosage: 5.3 MILLILITER, 2X/DAY (BID)(0.446 MG/KG/DAY TO A TOTAL DOSE OF 23.32 MG/DAY(11.66 MG BID))
  4. RUFINAMIDE [Suspect]
     Active Substance: RUFINAMIDE
     Indication: Product used for unknown indication
  5. RUFINAMIDE [Suspect]
     Active Substance: RUFINAMIDE
     Dates: start: 20250904

REACTIONS (3)
  - Seizure [Recovered/Resolved]
  - Diarrhoea [Not Recovered/Not Resolved]
  - Poor quality sleep [Not Recovered/Not Resolved]
